FAERS Safety Report 25433391 (Version 1)
Quarter: 2025Q2

REPORT INFORMATION
  Report Type: Spontaneous
  Country: PR (occurrence: None)
  Receive Date: 20250605
  Receipt Date: 20250605
  Transmission Date: 20250717
  Serious: Yes (Other)
  Sender: FDA-CTU
  Company Number: None

PATIENT
  Age: 62 Year
  Sex: Male
  Weight: 81.65 kg

DRUGS (10)
  1. PURIFIED CORTROPHIN GEL [Suspect]
     Active Substance: CORTICOTROPIN
     Indication: Gout
     Dosage: OTHER STRENGTH : 80/1 UNIT/ML;?FREQUENCY : DAILY;?
     Route: 058
     Dates: start: 20250509, end: 20250605
  2. ALLOPURINOL [Concomitant]
     Active Substance: ALLOPURINOL
  3. GLIMEPIRIDE [Concomitant]
     Active Substance: GLIMEPIRIDE
  4. JANUMET XR [Concomitant]
     Active Substance: METFORMIN HYDROCHLORIDE\SITAGLIPTIN PHOSPHATE
  5. COREG [Concomitant]
     Active Substance: CARVEDILOL
  6. FARXIGA [Concomitant]
     Active Substance: DAPAGLIFLOZIN PROPANEDIOL
  7. Lantus Subcutaneous Solution [Concomitant]
  8. LOVAZA [Concomitant]
     Active Substance: OMEGA-3-ACID ETHYL ESTERS
  9. TRIBENZOR [Concomitant]
     Active Substance: AMLODIPINE BESYLATE\HYDROCHLOROTHIAZIDE\OLMESARTAN MEDOXOMIL
  10. ASPIRIN [Concomitant]
     Active Substance: ASPIRIN

REACTIONS (2)
  - Blood uric acid decreased [None]
  - Peripheral swelling [None]

NARRATIVE: CASE EVENT DATE: 20250605
